FAERS Safety Report 5065596-8 (Version None)
Quarter: 2006Q3

REPORT INFORMATION
  Report Type: 
  Country: None (occurrence: None)
  Receive Date: 20060725
  Receipt Date: 20060714
  Transmission Date: 20061208
  Serious: Yes (Other)
  Sender: FDA-Public Use
  Company Number: 2006088412

PATIENT
  Age: 78 Year
  Sex: Male

DRUGS (5)
  1. LIPITOR [Suspect]
     Indication: DRUG USE FOR UNKNOWN INDICATION
     Dosage: (10 MG,), ORAL
     Route: 048
     Dates: start: 20040101
  2. RAMIPRIL [Concomitant]
  3. METFORMIN (METFORMIN) [Concomitant]
  4. ASPIRIN [Concomitant]
  5. RANITIDINE [Concomitant]

REACTIONS (3)
  - ECZEMA [None]
  - RASH PRURITIC [None]
  - SCAR [None]
